FAERS Safety Report 6326125-1 (Version None)
Quarter: 2009Q3

REPORT INFORMATION
  Report Type: 
  Country: None (occurrence: None)
  Receive Date: 20090824
  Receipt Date: 20090813
  Transmission Date: 20100115
  Serious: Yes (Disabling, Other)
  Sender: FDA-Public Use
  Company Number: PHEH2009US08837

PATIENT
  Sex: Female
  Weight: 55 kg

DRUGS (5)
  1. EXJADE [Suspect]
     Indication: IRON METABOLISM DISORDER
     Dosage: 1000 MG, DAILY
     Route: 048
     Dates: start: 20090707, end: 20090725
  2. EXJADE [Suspect]
     Indication: IRON OVERLOAD
  3. NEXIUM [Concomitant]
     Indication: GASTRIC ULCER HAEMORRHAGE
     Dosage: UNK
  4. VERSED [Concomitant]
     Dosage: 6 MG, UNK
     Dates: start: 20090722
  5. FENTANYL [Concomitant]
     Dosage: 100 MCG, UNK
     Dates: start: 20090722

REACTIONS (13)
  - ABDOMINAL DISCOMFORT [None]
  - ABDOMINAL PAIN UPPER [None]
  - ANAEMIA [None]
  - ARTERIOSCLEROSIS [None]
  - DIVERTICULITIS [None]
  - DYSPEPSIA [None]
  - GASTRIC DISORDER [None]
  - GASTRITIS [None]
  - LUNG DISORDER [None]
  - NAUSEA [None]
  - REFLUX OESOPHAGITIS [None]
  - RENAL CYST [None]
  - VOMITING [None]
